FAERS Safety Report 12382964 (Version 1)
Quarter: 2016Q2

REPORT INFORMATION
  Report Type: Spontaneous
  Country: FR (occurrence: FR)
  Receive Date: 20160518
  Receipt Date: 20160518
  Transmission Date: 20160815
  Serious: Yes (Hospitalization)
  Sender: FDA-Public Use
  Company Number: FR-SA-2016SA094397

PATIENT
  Age: 43 Year
  Sex: Female

DRUGS (10)
  1. DEXAMETHASONE. [Suspect]
     Active Substance: DEXAMETHASONE
     Route: 065
     Dates: start: 20160202, end: 20160202
  2. DIPRIVAN [Suspect]
     Active Substance: PROPOFOL
     Route: 042
     Dates: start: 20160202, end: 20160202
  3. LOVENOX [Suspect]
     Active Substance: ENOXAPARIN SODIUM
     Route: 058
     Dates: start: 20160202
  4. ONDANSETRON [Suspect]
     Active Substance: ONDANSETRON
     Route: 065
     Dates: start: 20160202, end: 20160202
  5. KETAMINE [Suspect]
     Active Substance: KETAMINE
     Route: 042
     Dates: start: 20160202, end: 20160202
  6. ULTIVA [Suspect]
     Active Substance: REMIFENTANIL HYDROCHLORIDE
     Route: 042
     Dates: start: 20160202, end: 20160202
  7. CEFAZOLIN [Suspect]
     Active Substance: CEFAZOLIN
     Route: 042
     Dates: start: 20160202, end: 20160202
  8. MARCAINE [Suspect]
     Active Substance: BUPIVACAINE HYDROCHLORIDE
     Route: 024
     Dates: start: 20160202, end: 20160202
  9. DROLEPTAN [Suspect]
     Active Substance: DROPERIDOL
     Route: 042
     Dates: start: 20160202, end: 20160202
  10. SEVORANE [Suspect]
     Active Substance: SEVOFLURANE
     Route: 065
     Dates: start: 20160202, end: 20160202

REACTIONS (1)
  - Hepatocellular injury [Recovering/Resolving]

NARRATIVE: CASE EVENT DATE: 20160208
